FAERS Safety Report 5759047-5 (Version None)
Quarter: 2008Q2

REPORT INFORMATION
  Report Type: 
  Country: None (occurrence: None)
  Receive Date: 20080604
  Receipt Date: 20080512
  Transmission Date: 20081010
  Serious: No
  Sender: FDA-Public Use
  Company Number: US-BAYER-200811431BCC

PATIENT
  Age: 84 Year
  Sex: Female
  Weight: 51 kg

DRUGS (3)
  1. PHILLIP'S LIQUID GELS [Suspect]
     Indication: FAECES HARD
     Dosage: TOTAL DAILY DOSE: 100 MG  UNIT DOSE: 100 MG
     Route: 048
     Dates: start: 20060101
  2. PHILLIP'S LIQUID GELS [Suspect]
     Dosage: UNIT DOSE: 100 MG
     Route: 048
     Dates: start: 20080323, end: 20080329
  3. MANY UNKNOWN MEDICATION [Concomitant]

REACTIONS (1)
  - FAECES HARD [None]
